FAERS Safety Report 8001494-5 (Version None)
Quarter: 2011Q4

REPORT INFORMATION
  Report Type: 
  Country: None (occurrence: None)
  Receive Date: 20111222
  Receipt Date: 20111216
  Transmission Date: 20120403
  Serious: Yes (Other)
  Sender: FDA-Public Use
  Company Number: JP-JNJFOC-20111201645

PATIENT
  Age: 14 Year
  Sex: Female

DRUGS (8)
  1. AMBROXOL HYDROCHLORIDE [Concomitant]
     Route: 048
  2. ISOSORBIDE DINITRATE [Concomitant]
     Route: 062
  3. PREGABALIN [Concomitant]
     Route: 048
  4. ETIZOLAM [Concomitant]
     Route: 048
  5. ALENDRONATE SODIUM [Concomitant]
     Route: 048
  6. TRAMADOL HYDROCHLORIDE/ACETAMINOPHEN [Suspect]
     Dosage: 1 DF 2 PER DAY
     Route: 048
     Dates: start: 20111121, end: 20111127
  7. LACTULOSE [Concomitant]
     Route: 048
  8. TRAMADOL HYDROCHLORIDE/ACETAMINOPHEN [Suspect]
     Indication: PAIN
     Dosage: 2 DOSES 2 TIMES A DAY
     Route: 048
     Dates: start: 20111128

REACTIONS (5)
  - TUBULOINTERSTITIAL NEPHRITIS [None]
  - C-REACTIVE PROTEIN INCREASED [None]
  - BLOOD CREATININE INCREASED [None]
  - CONSTIPATION [None]
  - HYPERHIDROSIS [None]
